FAERS Safety Report 7281698-X (Version None)
Quarter: 2010Q4

REPORT INFORMATION
  Report Type: 
  Country: None (occurrence: None)
  Receive Date: 20101221
  Receipt Date: 20100309
  Transmission Date: 20110411
  Serious: Yes (Hospitalization)
  Sender: FDA-Public Use
  Company Number: WAES 1003USA01392

PATIENT
  Age: 43 Year
  Sex: Female
  Weight: 127.0072 kg

DRUGS (8)
  1. JANUVIA [Suspect]
     Indication: TYPE 2 DIABETES MELLITUS
     Dosage: 100 MG/DAILY/PO
     Route: 048
     Dates: start: 20091111
  2. LANTUS [Concomitant]
  3. LASIX [Concomitant]
  4. NOVOLOG [Concomitant]
  5. PLAVIX [Concomitant]
  6. LISINOPRIL [Concomitant]
  7. PROPRANOLOL HYDROCHLORIDE [Concomitant]
  8. SIMVASTATIN [Concomitant]

REACTIONS (1)
  - PANCREATIC DISORDER [None]
